FAERS Safety Report 4719250-X (Version None)
Quarter: 2005Q3

REPORT INFORMATION
  Report Type: 
  Country: None (occurrence: None)
  Receive Date: 20050718
  Receipt Date: 20050324
  Transmission Date: 20060218
  Serious: No
  Sender: FDA-Public Use
  Company Number: 2005000607

PATIENT
  Age: 44 Year
  Sex: Female
  Weight: 83.4619 kg

DRUGS (8)
  1. TARCEVA [Suspect]
     Indication: BREAST CANCER
     Dosage: 150 MG (QD), ORAL
     Route: 048
     Dates: start: 20041222, end: 20050110
  2. TARCEVA [Suspect]
     Indication: BREAST CANCER
     Dosage: 150 MG (QD), ORAL
     Route: 048
     Dates: start: 20050120, end: 20050324
  3. HERCEPTIN [Concomitant]
  4. FASLODEX [Concomitant]
  5. ZOLADEX [Concomitant]
  6. ARIMIDEX [Concomitant]
  7. ZOMETA [Concomitant]
  8. RADIATION TREATMENT TO STERNUM [Concomitant]

REACTIONS (7)
  - ABDOMINAL PAIN LOWER [None]
  - DIARRHOEA [None]
  - DYSPEPSIA [None]
  - ENTERITIS [None]
  - GASTROOESOPHAGEAL REFLUX DISEASE [None]
  - OESOPHAGITIS [None]
  - RASH [None]
